FAERS Safety Report 7971255-1 (Version None)
Quarter: 2011Q4

REPORT INFORMATION
  Report Type: 
  Country: None (occurrence: None)
  Receive Date: 20111212
  Receipt Date: 20101111
  Transmission Date: 20120403
  Serious: No
  Sender: FDA-Public Use
  Company Number: US-BRISTOL-MYERS SQUIBB COMPANY-15382328

PATIENT
  Sex: Female

DRUGS (2)
  1. XELODA [Suspect]
  2. IXEMPRA KIT [Suspect]

REACTIONS (2)
  - PANCYTOPENIA [None]
  - FATIGUE [None]
